FAERS Safety Report 4603291-7 (Version None)
Quarter: 2005Q1

REPORT INFORMATION
  Report Type: 
  Country: None (occurrence: None)
  Receive Date: 20050308
  Receipt Date: 20050301
  Transmission Date: 20050727
  Serious: Yes (Death)
  Sender: FDA-Public Use
  Company Number: 2000023119NL

PATIENT
  Age: 71 Year
  Sex: Female
  Weight: 60.0109 kg

DRUGS (3)
  1. EXEMESTANE [Suspect]
     Indication: BREAST CANCER FEMALE
     Dosage: 25 MG (25 MG, DAILY), ORAL
     Route: 048
     Dates: start: 19990921, end: 20000504
  2. PHENYTOIN SODIUM (PHENYTOIN SODIM) [Concomitant]
  3. PHENOBARBITAL TAB [Concomitant]

REACTIONS (4)
  - EPILEPSY [None]
  - FALL [None]
  - HAEMORRHAGE INTRACRANIAL [None]
  - PETIT MAL EPILEPSY [None]
